FAERS Safety Report 7030785-X (Version None)
Quarter: 2010Q4

REPORT INFORMATION
  Report Type: 
  Country: None (occurrence: None)
  Receive Date: 20101001
  Receipt Date: 20100920
  Transmission Date: 20110411
  Serious: Yes (Other)
  Sender: FDA-Public Use
  Company Number: 2010MA002883

PATIENT
  Age: 56 Year
  Sex: Female

DRUGS (7)
  1. CARBAMAZEPINE [Suspect]
     Dosage: 800 MG;QD
  2. TOPIRAMATE [Concomitant]
  3. VALPROATE SODIUM [Concomitant]
  4. CLOBAZAM [Concomitant]
  5. CLONAZEPAM [Concomitant]
  6. LEVETIRACETAM [Concomitant]
  7. PHENOBARBITAL [Concomitant]

REACTIONS (3)
  - CONDITION AGGRAVATED [None]
  - ELECTROENCEPHALOGRAM ABNORMAL [None]
  - GRAND MAL CONVULSION [None]
